FAERS Safety Report 11176751 (Version 3)
Quarter: 2015Q3

REPORT INFORMATION
  Report Type: Spontaneous
  Country: JP (occurrence: JP)
  Receive Date: 20150610
  Receipt Date: 20150723
  Transmission Date: 20151125
  Serious: Yes (Hospitalization)
  Sender: FDA-Public Use
  Company Number: JP-ROCHE-1591651

PATIENT
  Age: 83 Year
  Sex: Female
  Weight: 45 kg

DRUGS (8)
  1. ACTEMRA [Suspect]
     Active Substance: TOCILIZUMAB
     Indication: RHEUMATOID ARTHRITIS
     Dosage: ONLY ONCE
     Route: 041
     Dates: start: 20150529, end: 20150529
  2. MUCODYNE [Concomitant]
     Active Substance: CARBOCYSTEINE
     Indication: RESPIRATORY SYMPTOM
     Route: 048
  3. ISONIAZID. [Concomitant]
     Active Substance: ISONIAZID
     Indication: PULMONARY TUBERCULOSIS
     Route: 048
     Dates: start: 20150526, end: 20150605
  4. LOSARTAN. [Concomitant]
     Active Substance: LOSARTAN
     Indication: HYPERTENSION
     Route: 048
  5. ACTEMRA [Suspect]
     Active Substance: TOCILIZUMAB
     Indication: RHEUMATOID ARTHRITIS
     Dosage: ONLY ONCE
     Route: 041
     Dates: start: 20150629
  6. CELECOX [Suspect]
     Active Substance: CELECOXIB
     Indication: RHEUMATOID ARTHRITIS
     Dosage: AT THE SINGLE USE AND OTHERS PAIN
     Route: 048
     Dates: start: 20150525, end: 20150613
  7. CALONAL [Concomitant]
     Active Substance: ACETAMINOPHEN
     Indication: PYREXIA
     Dosage: SINGLE USE
     Route: 048
     Dates: start: 20150524
  8. PYDOXAL [Concomitant]
     Active Substance: PYRIDOXAL
     Indication: PULMONARY TUBERCULOSIS
     Route: 048
     Dates: start: 20150526, end: 20150605

REACTIONS (1)
  - Erythema multiforme [Recovered/Resolved]

NARRATIVE: CASE EVENT DATE: 20150529
